FAERS Safety Report 9498004 (Version 1)
Quarter: 2013Q3

REPORT INFORMATION
  Report Type: Spontaneous
  Country: US (occurrence: US)
  Receive Date: 20130904
  Receipt Date: 20130904
  Transmission Date: 20140515
  Serious: Yes (Hospitalization, Other)
  Sender: FDA-Public Use
  Company Number: US-ABBOTT-13P-163-1140117-00

PATIENT
  Sex: Male
  Weight: 118.04 kg

DRUGS (3)
  1. ANDROGEL [Suspect]
     Indication: BLOOD TESTOSTERONE DECREASED
     Dosage: TWO 5 GRAM PACKETS DAILY
     Route: 061
     Dates: end: 2010
  2. UNKNOWN BLOOD PRESSURE MEDICATION [Concomitant]
     Indication: HYPERTENSION
  3. UNKNOWN DIABETIC MEDICATION [Concomitant]
     Indication: TYPE 2 DIABETES MELLITUS

REACTIONS (4)
  - Precancerous cells present [Recovered/Resolved]
  - Prostate cancer [Recovered/Resolved]
  - Prostatic specific antigen increased [Recovered/Resolved]
  - Prostatomegaly [Recovered/Resolved]
